FAERS Safety Report 10040882 (Version 1)
Quarter: 2014Q1

REPORT INFORMATION
  Report Type: Spontaneous
  Country: US (occurrence: US)
  Receive Date: 20140327
  Receipt Date: 20140327
  Transmission Date: 20141002
  Serious: No
  Sender: FDA-Public Use
  Company Number: US-PFIZER INC-2014083642

PATIENT
  Age: 83 Year
  Sex: Female
  Weight: 60.32 kg

DRUGS (4)
  1. TOVIAZ [Suspect]
     Indication: URINARY INCONTINENCE
     Dosage: 8 MG, UNK
  2. LOSARTAN [Concomitant]
     Indication: BLOOD PRESSURE ABNORMAL
     Dosage: 50 MG, DAILY
  3. HYDROCHLOROTHIAZIDE WITH TRIAMTERENE [Concomitant]
     Indication: BLOOD PRESSURE ABNORMAL
     Dosage: 12.5 MG, DAILY
  4. MONTELUKAST [Concomitant]
     Indication: ASTHMA
     Dosage: 10MG DAILY AT NIGHT

REACTIONS (4)
  - Drug intolerance [Unknown]
  - Dry mouth [Unknown]
  - Dry eye [Unknown]
  - Blood potassium decreased [Unknown]
